FAERS Safety Report 15630257 (Version 2)
Quarter: 2018Q4

REPORT INFORMATION
  Report Type: Spontaneous
  Country: FR (occurrence: FR)
  Receive Date: 20181118
  Receipt Date: 20181120
  Transmission Date: 20190205
  Serious: No
  Sender: FDA-Public Use
  Company Number: FR-B.I. PHARMACEUTICALS,INC./RIDGEFIELD-2018-BI-030090

PATIENT
  Sex: Female

DRUGS (6)
  1. REQUIP LP [Suspect]
     Active Substance: ROPINIROLE HYDROCHLORIDE
     Indication: PARKINSON^S DISEASE
     Route: 065
     Dates: start: 20160308, end: 20171205
  2. REQUIP LP [Suspect]
     Active Substance: ROPINIROLE HYDROCHLORIDE
     Route: 065
     Dates: end: 20171205
  3. AZILECT [Concomitant]
     Active Substance: RASAGILINE MESYLATE
     Indication: PARKINSON^S DISEASE
     Dosage: 1 MG, UNK
     Route: 065
     Dates: start: 201310
  4. MODOPAR [Concomitant]
     Active Substance: BENSERAZIDE HYDROCHLORIDE\LEVODOPA
     Indication: PARKINSON^S DISEASE
     Dosage: UNK
     Route: 065
     Dates: start: 201608
  5. SIFROL [Suspect]
     Active Substance: PRAMIPEXOLE
     Indication: PARKINSON^S DISEASE
     Route: 065
     Dates: start: 201502, end: 201603
  6. REQUIP LP [Suspect]
     Active Substance: ROPINIROLE HYDROCHLORIDE
     Route: 065

REACTIONS (20)
  - Impulse-control disorder [Recovered/Resolved]
  - Fall [Unknown]
  - Anxiety [Unknown]
  - Tremor [Unknown]
  - Gambling disorder [Recovered/Resolved]
  - Product use issue [Unknown]
  - Food craving [Unknown]
  - Emotional disorder [Unknown]
  - Depression [Not Recovered/Not Resolved]
  - Sleep terror [Unknown]
  - Agitation [Unknown]
  - Affective disorder [Unknown]
  - Psychomotor hyperactivity [Recovering/Resolving]
  - Nausea [Unknown]
  - Fatigue [Unknown]
  - Sleep disorder [Unknown]
  - Parkinsonism [Unknown]
  - Incorrect dose administered [Unknown]
  - Condition aggravated [Unknown]
  - Somnolence [Unknown]

NARRATIVE: CASE EVENT DATE: 2016
